FAERS Safety Report 9368954 (Version 1)
Quarter: 2013Q2

REPORT INFORMATION
  Report Type: Spontaneous
  Country: US (occurrence: None)
  Receive Date: 20130621
  Receipt Date: 20130621
  Transmission Date: 20140414
  Serious: Yes (Death)
  Sender: FDA-Public Use
  Company Number: FK201302047

PATIENT
  Age: 6 Year
  Sex: Male

DRUGS (2)
  1. BUPIVACAINE [Suspect]
     Indication: LOCAL ANAESTHESIA
     Dosage: EPIDURAL
     Route: 008
  2. FENTANYL (FENTANYL) [Suspect]
     Indication: LOCAL ANAESTHESIA
     Dosage: EPIDURAL
     Route: 008

REACTIONS (9)
  - Brain death [None]
  - Device deployment issue [None]
  - Ventricular arrhythmia [None]
  - Cardio-respiratory arrest [None]
  - Cardiotoxicity [None]
  - Sinus tachycardia [None]
  - Device dislocation [None]
  - Neurological symptom [None]
  - General physical health deterioration [None]
